FAERS Safety Report 25089607 (Version 1)
Quarter: 2025Q1

REPORT INFORMATION
  Report Type: Spontaneous
  Country: US (occurrence: None)
  Receive Date: 20250317
  Receipt Date: 20250317
  Transmission Date: 20250409
  Serious: Yes (Hospitalization)
  Sender: FDA-CTU
  Company Number: None

PATIENT
  Age: 74 Year
  Sex: Male
  Weight: 88 kg

DRUGS (1)
  1. MELOXICAM [Suspect]
     Active Substance: MELOXICAM
     Indication: Pain
     Route: 048

REACTIONS (8)
  - Hyperkalaemia [None]
  - Injury [None]
  - Rhabdomyolysis [None]
  - Acute kidney injury [None]
  - Hypoglycaemia [None]
  - Hypotension [None]
  - Bradycardia [None]
  - Nodal rhythm [None]

NARRATIVE: CASE EVENT DATE: 20241205
